FAERS Safety Report 14832230 (Version 1)
Quarter: 2018Q2

REPORT INFORMATION
  Report Type: Spontaneous
  Country: JP (occurrence: JP)
  Receive Date: 20180501
  Receipt Date: 20180501
  Transmission Date: 20180711
  Serious: Yes (Death, Other)
  Sender: FDA-Public Use
  Company Number: JP-EDENBRIDGE PHARMACEUTICALS, LLC-JP-2018EDE000090

PATIENT
  Age: 46 Year
  Sex: Male

DRUGS (3)
  1. PREDNISOLONE SODIUM PHOSPHATE. [Suspect]
     Active Substance: PREDNISOLONE SODIUM PHOSPHATE
     Indication: STILL^S DISEASE
     Dosage: 40-50 MG QD
  2. CYCLOSPORIN [Suspect]
     Active Substance: CYCLOSPORINE
     Indication: STILL^S DISEASE
     Dosage: UNK
  3. TACROLIMUS. [Suspect]
     Active Substance: TACROLIMUS
     Indication: STILL^S DISEASE
     Dosage: UNK

REACTIONS (3)
  - Pneumonia [Fatal]
  - Multiple organ dysfunction syndrome [Fatal]
  - Opportunistic infection [Unknown]
